FAERS Safety Report 4970821-5 (Version None)
Quarter: 2006Q2

REPORT INFORMATION
  Report Type: 
  Country: None (occurrence: None)
  Receive Date: 20060412
  Receipt Date: 20051221
  Transmission Date: 20061013
  Serious: Yes (Hospitalization)
  Sender: FDA-Public Use
  Company Number: JP-ROCHE-429973

PATIENT
  Age: 6 Year
  Sex: Male
  Weight: 22 kg

DRUGS (12)
  1. TAMIFLU [Suspect]
     Route: 048
     Dates: start: 20041129, end: 20041201
  2. TAMIFLU [Suspect]
     Route: 048
     Dates: start: 20041202, end: 20041202
  3. MUCODYNE [Concomitant]
     Dosage: 600MG TOTAL DAILY DOSE WAS TAKEN BETWEEN 02 DECEMBER 2004 - 22 DEC 2004.
     Route: 048
     Dates: start: 20041129, end: 20041222
  4. PERIACTIN [Concomitant]
     Dosage: FORM REPORTED AS ORAL FORMULATION (NOS)
     Route: 048
     Dates: start: 20041129, end: 20041201
  5. ASVERIN [Concomitant]
     Dosage: FORM REPORTED AS ORAL FORMULATION (NOS)
     Route: 048
     Dates: start: 20041129, end: 20041201
  6. 1 CONCOMITANT DRUG [Concomitant]
     Dosage: DRUG NAME REPORTED AS DIAPP.
     Route: 054
     Dates: start: 20041201, end: 20041201
  7. PHENOBAL [Concomitant]
     Route: 048
     Dates: start: 20041201, end: 20041213
  8. GLYCEOL [Concomitant]
     Route: 050
     Dates: start: 20041201, end: 20041209
  9. LAC B [Concomitant]
     Route: 048
     Dates: start: 20041201, end: 20041222
  10. MIYA BM [Concomitant]
     Dosage: FORM; FINE GRANULE
     Route: 048
     Dates: start: 20041201, end: 20041222
  11. MEPTIN [Concomitant]
     Route: 048
     Dates: start: 20041202, end: 20041222
  12. MUCOSOLVAN [Concomitant]
     Route: 048
     Dates: start: 20041202, end: 20041222

REACTIONS (3)
  - COMA [None]
  - DEPRESSED LEVEL OF CONSCIOUSNESS [None]
  - TOXIC INDUCED ENCEPHALOPATHY [None]
